FAERS Safety Report 9738335 (Version 1)
Quarter: 2013Q4

REPORT INFORMATION
  Report Type: Spontaneous
  Country: US (occurrence: US)
  Receive Date: 20131208
  Receipt Date: 20131208
  Transmission Date: 20140711
  Serious: No
  Sender: FDA-Public Use
  Company Number: US-SA-2013SA100029

PATIENT
  Sex: 0

DRUGS (1)
  1. FERRLECIT [Suspect]
     Route: 065
     Dates: start: 20130919

REACTIONS (2)
  - Chest pain [Unknown]
  - Dyspnoea [Unknown]
